FAERS Safety Report 19006480 (Version 1)
Quarter: 2021Q1

REPORT INFORMATION
  Report Type: Spontaneous
  Country: US (occurrence: US)
  Receive Date: 20210312
  Receipt Date: 20210312
  Transmission Date: 20210420
  Serious: Yes (Hospitalization)
  Sender: FDA-Public Use
  Company Number: None

PATIENT
  Sex: Female

DRUGS (32)
  1. DIAZEPAM. [Concomitant]
     Active Substance: DIAZEPAM
  2. NO DRUG NAME [Concomitant]
  3. LEFLUNOMIDE. [Concomitant]
     Active Substance: LEFLUNOMIDE
  4. ONDANSETRON [Concomitant]
     Active Substance: ONDANSETRON
  5. HUMIRA [Suspect]
     Active Substance: ADALIMUMAB
     Indication: PSORIATIC ARTHROPATHY
     Route: 058
     Dates: start: 20180127
  6. AMOX/K CLAV [Concomitant]
     Active Substance: AMOXICILLIN\CLAVULANATE POTASSIUM
  7. SUMATRIPTAN. [Concomitant]
     Active Substance: SUMATRIPTAN
  8. OXYCODONE [Concomitant]
     Active Substance: OXYCODONE
  9. PHENAZOPYRID [Concomitant]
  10. MEHOTREXATE [Concomitant]
  11. PROMETHAZINE [Concomitant]
     Active Substance: PROMETHAZINE HYDROCHLORIDE
  12. OMEPRAZOLE. [Concomitant]
     Active Substance: OMEPRAZOLE
  13. POLY?IRON [Concomitant]
     Active Substance: IRON
  14. PREGABALIN. [Concomitant]
     Active Substance: PREGABALIN
  15. SMZ/TMP DS [Concomitant]
     Active Substance: SULFAMETHOXAZOLE\TRIMETHOPRIM
  16. SUCRALFATE. [Concomitant]
     Active Substance: SUCRALFATE
  17. NITROFUR MAC [Concomitant]
     Active Substance: NITROFURANTOIN
  18. SIMVASTATIN. [Concomitant]
     Active Substance: SIMVASTATIN
  19. DICLOFENAC GEL [Concomitant]
     Active Substance: DICLOFENAC
  20. FLUCONAZOLE. [Concomitant]
     Active Substance: FLUCONAZOLE
  21. FOLIC ACID. [Concomitant]
     Active Substance: FOLIC ACID
  22. LEVOFLOXACIN. [Concomitant]
     Active Substance: LEVOFLOXACIN
  23. NITROFUANTIN [Concomitant]
  24. OXYMORPHONE ER [Concomitant]
     Active Substance: OXYMORPHONE
  25. SERTRALINE [Concomitant]
     Active Substance: SERTRALINE HYDROCHLORIDE
  26. BENAZEPRIL [Concomitant]
     Active Substance: BENAZEPRIL HYDROCHLORIDE
  27. BUPROPN HCL XL [Concomitant]
  28. BUT/ASA/CAF/CPD [Concomitant]
  29. CELECOXIB. [Concomitant]
     Active Substance: CELECOXIB
  30. FUROSEMIDE. [Concomitant]
     Active Substance: FUROSEMIDE
  31. OXYVOD/APAP [Concomitant]
  32. PO CHLORIDE ER [Concomitant]

REACTIONS (2)
  - Therapy interrupted [None]
  - Surgery [None]
